FAERS Safety Report 9637669 (Version 1)
Quarter: 2013Q4

REPORT INFORMATION
  Report Type: Spontaneous
  Country: US (occurrence: None)
  Receive Date: 20131018
  Receipt Date: 20131018
  Transmission Date: 20140711
  Serious: Yes (Death)
  Sender: FDA-Public Use
  Company Number: SYM-2013-11574

PATIENT
  Age: 68 Year
  Sex: Female

DRUGS (1)
  1. XENAZINE (TETRABENAZINE) (TABLET) TETRABENAZINE) [Suspect]
     Indication: PRODUCT USED FOR UNKNOWN INDICATION
     Dosage: 50 MG, 3 IN 1 D, ORAL
     Route: 048

REACTIONS (1)
  - Death [None]
